FAERS Safety Report 19304641 (Version 1)
Quarter: 2021Q2

REPORT INFORMATION
  Report Type: Spontaneous
  Country: US (occurrence: US)
  Receive Date: 20210526
  Receipt Date: 20210526
  Transmission Date: 20210717
  Serious: No
  Sender: FDA-Public Use
  Company Number: US-AMGEN INC.-USASP2021078929

PATIENT
  Age: 55 Year
  Sex: Female
  Weight: 64.85 kg

DRUGS (4)
  1. TOPAMAX [Concomitant]
     Active Substance: TOPIRAMATE
     Indication: MIGRAINE
     Route: 065
  2. AIMOVIG [Suspect]
     Active Substance: ERENUMAB-AOOE
     Indication: MIGRAINE
     Dosage: 140 MILLIGRAM, QMO
     Route: 065
     Dates: start: 2018
  3. LYRICA [Concomitant]
     Active Substance: PREGABALIN
     Indication: MIGRAINE
  4. BOTOX [Concomitant]
     Active Substance: ONABOTULINUMTOXINA
     Indication: MIGRAINE

REACTIONS (12)
  - Pain in extremity [Unknown]
  - Arthralgia [Unknown]
  - Influenza like illness [Unknown]
  - Insomnia [Unknown]
  - Hypertension [Unknown]
  - Constipation [Recovered/Resolved]
  - Inflammation [Unknown]
  - Depression [Unknown]
  - Alopecia [Unknown]
  - Fatigue [Unknown]
  - Hormone level abnormal [Unknown]
  - Weight increased [Unknown]

NARRATIVE: CASE EVENT DATE: 2018
